FAERS Safety Report 24023667 (Version 2)
Quarter: 2024Q2

REPORT INFORMATION
  Report Type: Report from Study
  Country: US (occurrence: US)
  Receive Date: 20240627
  Receipt Date: 20240628
  Transmission Date: 20240715
  Serious: No
  Sender: FDA-Public Use
  Company Number: US-ROCHE-3386443

PATIENT
  Age: 68 Year
  Sex: Male

DRUGS (1)
  1. ALECENSA [Suspect]
     Active Substance: ALECTINIB HYDROCHLORIDE
     Indication: Bronchial carcinoma
     Dosage: TAKE 4 CAPSULES (600MG TOTAL) BY MOUTH TWICE A DAY WITH FOOD
     Route: 048

REACTIONS (2)
  - Cerebral disorder [Unknown]
  - Mental impairment [Unknown]
